FAERS Safety Report 21678585 (Version 2)
Quarter: 2022Q4

REPORT INFORMATION
  Report Type: Spontaneous
  Country: EG (occurrence: EG)
  Receive Date: 20221203
  Receipt Date: 20221220
  Transmission Date: 20230112
  Serious: Yes (Other)
  Sender: FDA-Public Use
  Company Number: EG-NOVOPROD-984897

PATIENT
  Age: 62 Year
  Sex: Male
  Weight: 77 kg

DRUGS (6)
  1. INSULIN HUMAN [Suspect]
     Active Substance: INSULIN HUMAN
     Dosage: 30U-20U
     Route: 058
  2. INSULIN HUMAN [Suspect]
     Active Substance: INSULIN HUMAN
     Indication: Type 1 diabetes mellitus
     Dosage: UNK
     Route: 058
  3. INSULIN HUMAN [Suspect]
     Active Substance: INSULIN HUMAN
     Dosage: 50 IU, QD (30 U MORNING AND 20U NIGHT)
     Route: 058
  4. ATORVASTATIN CALCIUM [Concomitant]
     Active Substance: ATORVASTATIN CALCIUM
     Indication: Angiopathy
     Dosage: 40 MG, QD
     Route: 048
  5. NAFRONYL [Concomitant]
     Active Substance: NAFRONYL
     Indication: Angiopathy
     Dosage: 1 TAB QD
     Route: 048
  6. PLAVIX [Concomitant]
     Active Substance: CLOPIDOGREL BISULFATE
     Dosage: 1 TAB QD
     Route: 048

REACTIONS (3)
  - Skin ulcer [Recovered/Resolved]
  - Leg amputation [Unknown]
  - Hyperglycaemia [Unknown]
